FAERS Safety Report 6994194-1 (Version None)
Quarter: 2010Q3

REPORT INFORMATION
  Report Type: 
  Country: None (occurrence: None)
  Receive Date: 20100917
  Receipt Date: 20100325
  Transmission Date: 20110219
  Serious: No
  Sender: FDA-Public Use
  Company Number: US-ASTRAZENECA-2010SE13586

PATIENT
  Age: 10 Year
  Sex: Male

DRUGS (2)
  1. SEROQUEL [Suspect]
     Route: 048
  2. RITALIN [Concomitant]

REACTIONS (2)
  - OFF LABEL USE [None]
  - SOMNOLENCE [None]
